FAERS Safety Report 6234380-1 (Version None)
Quarter: 2009Q2

REPORT INFORMATION
  Report Type: 
  Country: None (occurrence: None)
  Receive Date: 20090616
  Receipt Date: 20090616
  Transmission Date: 20091009
  Serious: No
  Sender: FDA-Public Use
  Company Number: None

PATIENT
  Sex: Female
  Weight: 72.5755 kg

DRUGS (1)
  1. OXCARBAZEPINE [Suspect]
     Indication: BIPOLAR DISORDER
     Dosage: 300 MG BID PO
     Route: 048
     Dates: start: 20090411, end: 20090610

REACTIONS (3)
  - HANGOVER [None]
  - HEPATIC FUNCTION ABNORMAL [None]
  - PRODUCT SUBSTITUTION ISSUE [None]
